FAERS Safety Report 8174071-3 (Version None)
Quarter: 2012Q1

REPORT INFORMATION
  Report Type: 
  Country: None (occurrence: None)
  Receive Date: 20120229
  Receipt Date: 20120222
  Transmission Date: 20120608
  Serious: Yes (Other)
  Sender: FDA-Public Use
  Company Number: CA-ROCHE-1042772

PATIENT
  Sex: Male

DRUGS (8)
  1. IRON [Concomitant]
  2. CALCIUM [Concomitant]
  3. LEVOTHYROXINE SODIUM [Concomitant]
  4. AMLODIPINE [Concomitant]
  5. NUTROPIN [Suspect]
     Indication: FAILURE TO THRIVE
     Dates: start: 20090101
  6. HEPARIN [Concomitant]
  7. FOSINOPRIL SODIUM [Concomitant]
  8. ALFACALCIDOL [Concomitant]

REACTIONS (1)
  - HAIR GROWTH ABNORMAL [None]
